FAERS Safety Report 4519785-9 (Version None)
Quarter: 2004Q4

REPORT INFORMATION
  Report Type: 
  Country: None (occurrence: None)
  Receive Date: 20041201
  Receipt Date: 20041201
  Transmission Date: 20050328
  Serious: Yes (Hospitalization)
  Sender: FDA-Public Use
  Company Number: None

PATIENT
  Age: 12 Year
  Sex: Male
  Weight: 66 kg

DRUGS (2)
  1. DEPAKOTE [Suspect]
     Indication: BIPOLAR DISORDER
     Dosage: 1 AM + 2 PM (PO)
     Route: 048
     Dates: end: 20040915
  2. SEROQUEL [Concomitant]

REACTIONS (1)
  - PANCREATITIS ACUTE [None]
